FAERS Safety Report 7329491-3 (Version None)
Quarter: 2011Q1

REPORT INFORMATION
  Report Type: 
  Country: None (occurrence: None)
  Receive Date: 20110303
  Receipt Date: 20110224
  Transmission Date: 20110831
  Serious: Yes (Hospitalization)
  Sender: FDA-Public Use
  Company Number: US-B.I. PHARMACEUTICALS,INC./RIDGEFIELD-2011-BP-00819BP

PATIENT
  Sex: Male
  Weight: 101.15 kg

DRUGS (17)
  1. PRADAXA [Suspect]
     Indication: ATRIAL FIBRILLATION
     Dosage: 300 MG
     Route: 048
     Dates: start: 20101211, end: 20110108
  2. LOPRESSOR [Concomitant]
     Dosage: 100 MG
  3. SIMVASTATIN [Concomitant]
     Dosage: 40 MG
  4. NORCO [Concomitant]
     Indication: PAIN
  5. SPIRONOLACTONE [Concomitant]
     Dosage: 25 MG
  6. PRADAXA [Suspect]
     Indication: CEREBROVASCULAR ACCIDENT PROPHYLAXIS
  7. ADVIL LIQUI-GELS [Concomitant]
  8. COLCHICINE [Concomitant]
     Dosage: 1.2 MG
  9. ISMO [Concomitant]
     Dosage: 30 MG
  10. ASPIRIN [Concomitant]
     Dosage: 325 MG
  11. LASIX [Concomitant]
     Dosage: 80 MG
  12. GLIPIZIDE [Concomitant]
  13. POTASSIUM CHLORIDE [Concomitant]
     Dosage: 10 MEQ
  14. MULTIVIT [Concomitant]
  15. ALLOPURINOL [Concomitant]
     Dosage: 200 MG
  16. IRON [Concomitant]
     Dosage: 650 MG
  17. RAMIPRIL [Concomitant]
     Dosage: 5 MG

REACTIONS (19)
  - OEDEMA PERIPHERAL [None]
  - SINUS TACHYCARDIA [None]
  - BUNDLE BRANCH BLOCK LEFT [None]
  - BLOOD CREATININE [None]
  - FAECES DISCOLOURED [None]
  - HAEMOGLOBIN DECREASED [None]
  - DYSPNOEA EXERTIONAL [None]
  - BRAIN NATRIURETIC PEPTIDE [None]
  - ANAEMIA [None]
  - ASTHENIA [None]
  - RALES [None]
  - ATELECTASIS [None]
  - BLOOD UREA [None]
  - DYSPNOEA [None]
  - GASTROINTESTINAL HAEMORRHAGE [None]
  - PALLOR [None]
  - STOOL ANALYSIS ABNORMAL [None]
  - CARDIAC FAILURE CONGESTIVE [None]
  - PLEURAL EFFUSION [None]
